FAERS Safety Report 7400820-5 (Version None)
Quarter: 2011Q2

REPORT INFORMATION
  Report Type: 
  Country: None (occurrence: None)
  Receive Date: 20110407
  Receipt Date: 20110216
  Transmission Date: 20111010
  Serious: Yes (Hospitalization)
  Sender: FDA-Public Use
  Company Number: US-BAYER-201041791NA

PATIENT
  Sex: Female
  Weight: 97.959 kg

DRUGS (5)
  1. UNCODEABLE ^UNCLASSIFIABLE^ [Concomitant]
     Indication: MUSCLE RELAXANT THERAPY
     Dosage: UNK UNK, HS
     Dates: start: 20060101, end: 20080101
  2. UNCODEABLE ^UNCLASSIFIABLE^ [Concomitant]
     Indication: PRURITUS
     Dosage: 25 MG, PRN
     Dates: start: 20081001
  3. BETAMETHASONE DIPROPIONATE [Concomitant]
     Indication: PRURITUS
     Dosage: UNK
     Dates: start: 20081001
  4. YASMIN [Suspect]
     Indication: PRODUCT USED FOR UNKNOWN INDICATION
     Dosage: UNK
     Route: 048
     Dates: start: 20030701, end: 20081005
  5. CALCIUM [Concomitant]
     Dosage: 1000 MG, QD

REACTIONS (8)
  - THROMBOPHLEBITIS [None]
  - FEELING ABNORMAL [None]
  - PAIN [None]
  - THROMBOSIS [None]
  - LOSS OF CONSCIOUSNESS [None]
  - DYSPNOEA [None]
  - SKIN DISCOLOURATION [None]
  - PULMONARY EMBOLISM [None]
